FAERS Safety Report 11797291 (Version 2)
Quarter: 2015Q4

REPORT INFORMATION
  Report Type: Spontaneous
  Country: PE (occurrence: PE)
  Receive Date: 20151203
  Receipt Date: 20151215
  Transmission Date: 20160305
  Serious: No
  Sender: FDA-Public Use
  Company Number: PE-PFIZER INC-2015408676

PATIENT
  Age: 67 Year
  Sex: Female

DRUGS (1)
  1. LYRICA [Suspect]
     Active Substance: PREGABALIN
     Indication: HERNIA PAIN
     Dosage: 75 MG, 2X/DAY
     Dates: start: 2014

REACTIONS (1)
  - Drug effect incomplete [Unknown]
